FAERS Safety Report 5179639-4 (Version None)
Quarter: 2006Q4

REPORT INFORMATION
  Report Type: 
  Country: None (occurrence: None)
  Receive Date: 20061211
  Receipt Date: 20061127
  Transmission Date: 20070319
  Serious: Yes (Other)
  Sender: FDA-Public Use
  Company Number: 228084

PATIENT
  Age: 43 Year
  Sex: Female

DRUGS (1)
  1. AVASTIN [Suspect]
     Indication: PSEUDOXANTHOMA ELASTICUM
     Dosage: 1.25 MG, 1/MONTH, INTRAOCULAR
     Route: 031
     Dates: start: 20060201, end: 20060601

REACTIONS (5)
  - ANGIOPATHY [None]
  - EYE DISORDER [None]
  - EYE HAEMORRHAGE [None]
  - SCOTOMA [None]
  - VASCULAR RUPTURE [None]
